FAERS Safety Report 14639385 (Version 1)
Quarter: 2018Q1

REPORT INFORMATION
  Report Type: Spontaneous
  Country: US (occurrence: US)
  Receive Date: 20180315
  Receipt Date: 20180315
  Transmission Date: 20180509
  Serious: Yes (Other)
  Sender: FDA-Public Use
  Company Number: US-ACCORD-064205

PATIENT
  Age: 88 Year
  Sex: Female
  Weight: 72.12 kg

DRUGS (1)
  1. CAPECITABINE. [Suspect]
     Active Substance: CAPECITABINE
     Indication: RECTAL CANCER
     Dosage: STRENGTH: 500 MG?1 PO BID
     Route: 048
     Dates: start: 20180222, end: 20180223

REACTIONS (3)
  - Abnormal behaviour [Unknown]
  - Anger [Unknown]
  - Homicidal ideation [Unknown]

NARRATIVE: CASE EVENT DATE: 20180222
